FAERS Safety Report 23972896 (Version 2)
Quarter: 2025Q3

REPORT INFORMATION
  Report Type: Spontaneous
  Country: CN (occurrence: CN)
  Receive Date: 20240613
  Receipt Date: 20250702
  Transmission Date: 20251021
  Serious: Yes (Other)
  Sender: BAYER HEALTHCARE PHARMACEUTICALS INC.
  Company Number: CN-BAYER-2024A085244

PATIENT
  Age: 19 Year
  Sex: Female
  Weight: 47 kg

DRUGS (2)
  1. DROSPIRENONE\ETHINYL ESTRADIOL [Suspect]
     Active Substance: DROSPIRENONE\ETHINYL ESTRADIOL
     Indication: Hyperandrogenism
     Route: 048
     Dates: start: 202104, end: 20210809
  2. DROSPIRENONE\ETHINYL ESTRADIOL [Suspect]
     Active Substance: DROSPIRENONE\ETHINYL ESTRADIOL
     Indication: Hyperandrogenism
     Route: 048
     Dates: start: 202110, end: 20220104

REACTIONS (4)
  - Primary hyperaldosteronism [Recovered/Resolved]
  - Primary hyperaldosteronism [Recovering/Resolving]
  - Product prescribing issue [None]
  - Drug effective for unapproved indication [None]

NARRATIVE: CASE EVENT DATE: 20210401
